FAERS Safety Report 21960072 (Version 1)
Quarter: 2023Q1

REPORT INFORMATION
  Report Type: Spontaneous
  Country: US (occurrence: US)
  Receive Date: 20230206
  Receipt Date: 20230206
  Transmission Date: 20230417
  Serious: Yes (Life-Threatening, Hospitalization, Other)
  Sender: FDA-Public Use
  Company Number: US-drreddys-SPO/USA/23/0160606

PATIENT
  Age: 17 Year
  Sex: Female
  Weight: 103 kg

DRUGS (5)
  1. AMLODIPINE BESYLATE [Suspect]
     Active Substance: AMLODIPINE BESYLATE
     Indication: Product used for unknown indication
     Dosage: 500 TO 550 MG
     Dates: start: 202107
  2. AMLODIPINE BESYLATE [Suspect]
     Active Substance: AMLODIPINE BESYLATE
     Dosage: 500 TO 550 MG
     Dates: start: 202107
  3. IBUPROFEN [Concomitant]
     Active Substance: IBUPROFEN
     Indication: Product used for unknown indication
     Dates: start: 202107
  4. ACETAMINOPHEN [Concomitant]
     Active Substance: ACETAMINOPHEN
     Indication: Product used for unknown indication
     Dates: start: 202107
  5. AMOXICILLIN [Concomitant]
     Active Substance: AMOXICILLIN
     Indication: Product used for unknown indication
     Dates: start: 202107

REACTIONS (10)
  - Toxicity to various agents [Recovering/Resolving]
  - Circulatory collapse [Recovering/Resolving]
  - Vasoplegia syndrome [Recovering/Resolving]
  - Unresponsive to stimuli [Recovering/Resolving]
  - Cerebrovascular accident [Unknown]
  - Infarction [Unknown]
  - Visual impairment [Unknown]
  - Acute kidney injury [Recovering/Resolving]
  - Seizure [Recovering/Resolving]
  - Intentional overdose [Recovering/Resolving]

NARRATIVE: CASE EVENT DATE: 20210701
